FAERS Safety Report 13350102 (Version 1)
Quarter: 2017Q1

REPORT INFORMATION
  Report Type: Spontaneous
  Country: US (occurrence: US)
  Receive Date: 20170320
  Receipt Date: 20170320
  Transmission Date: 20170429
  Serious: No
  Sender: FDA-Public Use
  Company Number: US-BAYER-2017-052252

PATIENT
  Age: 59 Year
  Sex: Male
  Weight: 82 kg

DRUGS (2)
  1. ALEVE [Suspect]
     Active Substance: NAPROXEN SODIUM
     Indication: PAIN
     Dosage: 3 TABLETS AT ONE TIME
     Route: 048
     Dates: start: 20170315, end: 20170315
  2. ALEVE [Suspect]
     Active Substance: NAPROXEN SODIUM
     Indication: PAIN
     Dosage: UNK
     Route: 048
     Dates: start: 201703, end: 20170315

REACTIONS (3)
  - Tongue blistering [Not Recovered/Not Resolved]
  - Product use issue [Recovered/Resolved with Sequelae]
  - Wrong technique in product usage process [Recovered/Resolved with Sequelae]

NARRATIVE: CASE EVENT DATE: 20170305
